FAERS Safety Report 22370616 (Version 1)
Quarter: 2023Q2

REPORT INFORMATION
  Report Type: Spontaneous
  Country: IT (occurrence: IT)
  Receive Date: 20230526
  Receipt Date: 20230526
  Transmission Date: 20230722
  Serious: Yes (Hospitalization, Other)
  Sender: FDA-Public Use
  Company Number: IT-EPICPHARMA-IT-2023EPCLIT00861

PATIENT
  Age: 55 Year
  Sex: Female

DRUGS (1)
  1. MORPHINE SULFATE [Suspect]
     Active Substance: MORPHINE SULFATE
     Indication: Product used for unknown indication
     Route: 065

REACTIONS (5)
  - Leukoencephalopathy [Unknown]
  - Toxicity to various agents [Unknown]
  - Respiratory failure [Unknown]
  - Coma [Unknown]
  - Intentional overdose [Unknown]
